FAERS Safety Report 7088174-8 (Version None)
Quarter: 2010Q4

REPORT INFORMATION
  Report Type: 
  Country: None (occurrence: None)
  Receive Date: 20101108
  Receipt Date: 20101103
  Transmission Date: 20110411
  Serious: Yes (Death)
  Sender: FDA-Public Use
  Company Number: GB-ELI_LILLY_AND_COMPANY-GB201010000684

PATIENT
  Sex: Male
  Weight: 8.5 kg

DRUGS (21)
  1. GEMCITABINE HCL [Suspect]
     Dosage: 1444 MG, DAY 1 AND DAY 8
     Route: 042
     Dates: start: 20100908
  2. CYCLOPHOSPHAMIDE [Suspect]
     Dosage: 1500 MG, SINGLE DOSE
     Route: 042
     Dates: start: 20100908
  3. VINCRISTINE [Suspect]
     Dosage: 2 MG, SINGLE DOSE
     Route: 042
     Dates: start: 20100908
  4. RITUXIMAB [Suspect]
     Dosage: 800 MG, SINGLE DOSE
     Route: 042
     Dates: start: 20100908
  5. PREDNISOLONE [Suspect]
     Dosage: 100 MG, 5 DAYS
     Route: 048
     Dates: start: 20100908
  6. PEGFILGRASTIM [Suspect]
     Dosage: 6 MG, SINGLE DOSE
     Route: 058
     Dates: start: 20100916
  7. LANSOPRAZOLE [Concomitant]
     Indication: DYSPEPSIA
     Dosage: 30 MG, DAILY (1/D)
     Route: 048
     Dates: start: 20100925, end: 20100928
  8. FUROSEMIDE [Concomitant]
     Indication: HYPERTENSION
     Dosage: 20 MG, 2/D
     Route: 048
     Dates: start: 20100925, end: 20100928
  9. RAMIPRIL [Concomitant]
     Indication: HYPERTENSION
     Dosage: 5 MG, DAILY (1/D)
     Route: 048
     Dates: start: 20100925, end: 20100928
  10. FELODIPINE [Concomitant]
     Indication: HYPERTENSION
     Dosage: 2.5 MG, DAILY (1/D)
     Route: 048
     Dates: start: 20100925, end: 20100928
  11. SIMVASTATIN [Concomitant]
     Indication: BLOOD CHOLESTEROL INCREASED
     Dosage: 40 MG, DAILY (1/D)
     Route: 048
     Dates: start: 20100925, end: 20100928
  12. HYDROCORTISONE [Concomitant]
     Dosage: 50 MG, DAILY (1/D)
     Route: 042
     Dates: start: 20100925, end: 20100928
  13. PARACETAMOL [Concomitant]
     Indication: PAIN
     Dosage: 500 MG, AS NEEDED
     Route: 042
     Dates: start: 20100925, end: 20100928
  14. DIHYDROCODEINE BITARTRATE INJ [Concomitant]
     Indication: PAIN
     Dosage: 30 MG, AS NEEDED
     Route: 048
     Dates: start: 20100925, end: 20100928
  15. MORPHINE [Concomitant]
     Indication: PAIN
     Dosage: 10 MG, AS NEEDED
     Route: 058
     Dates: start: 20100925, end: 20100930
  16. METOCLOPRAMIDE [Concomitant]
     Indication: NAUSEA
     Dosage: 10 MG, AS NEEDED
     Route: 058
     Dates: start: 20100925, end: 20100930
  17. MIDAZOLAM [Concomitant]
     Indication: AGITATION
     Dosage: 2 MG, AS NEEDED
     Route: 058
     Dates: start: 20100925
  18. SANDOCAL [Concomitant]
     Indication: HYPOKALAEMIA
     Dosage: UNK, 2/D 1 TABLET
     Route: 048
     Dates: start: 20100925
  19. ALLOPURINOL [Concomitant]
     Indication: PROPHYLAXIS
     Dosage: 300 MG, DAILY (1/D)
     Route: 048
     Dates: start: 20100925
  20. SENNA [Concomitant]
     Indication: CONSTIPATION
     Dosage: 75 MG, DAILY (1/D)
     Route: 048
     Dates: start: 20100925
  21. FERROUS SULFATE TAB [Concomitant]
     Indication: IRON DEFICIENCY ANAEMIA
     Dosage: 200 MG, 3/D
     Route: 048
     Dates: start: 20100925

REACTIONS (4)
  - FEBRILE NEUTROPENIA [None]
  - MOBILITY DECREASED [None]
  - NEUTROPENIC INFECTION [None]
  - PANCYTOPENIA [None]
